FAERS Safety Report 4990337-X (Version None)
Quarter: 2006Q2

REPORT INFORMATION
  Report Type: 
  Country: None (occurrence: None)
  Receive Date: 20060503
  Receipt Date: 20060426
  Transmission Date: 20061013
  Serious: Yes (Other)
  Sender: FDA-Public Use
  Company Number: 2006UW07527

PATIENT

DRUGS (4)
  1. SEROQUEL [Suspect]
     Route: 048
  2. SEROQUEL [Suspect]
     Dosage: TITRATED DOWN
     Route: 048
  3. ATYPICALS [Suspect]
  4. POSSIBLE SSRI [Suspect]

REACTIONS (3)
  - EXTRAPYRAMIDAL DISORDER [None]
  - MUSCLE TWITCHING [None]
  - SUICIDAL IDEATION [None]
